FAERS Safety Report 9178506 (Version 2)
Quarter: 2013Q2

REPORT INFORMATION
  Report Type: Spontaneous
  Country: US (occurrence: US)
  Receive Date: 20130321
  Receipt Date: 20130401
  Transmission Date: 20140414
  Serious: Yes (Other)
  Sender: FDA-Public Use
  Company Number: US-ABBOTT-13P-163-1061894-00

PATIENT
  Sex: Male
  Weight: 70.37 kg

DRUGS (9)
  1. NIASPAN (COATED) [Suspect]
     Indication: HIGH DENSITY LIPOPROTEIN DECREASED
     Dates: start: 2003, end: 201208
  2. NIASPAN (COATED) [Suspect]
     Dates: start: 201208
  3. EFFIENT [Concomitant]
     Indication: CORONARY ARTERIAL STENT INSERTION
  4. TOPROL [Concomitant]
     Indication: HEART RATE INCREASED
  5. LISINOPRIL [Concomitant]
     Indication: CORONARY ARTERIAL STENT INSERTION
  6. LISINOPRIL [Concomitant]
     Indication: BLOOD PRESSURE INCREASED
  7. FOLIC ACID [Concomitant]
     Indication: BLOOD HOMOCYSTEINE INCREASED
  8. CRESTOR [Concomitant]
     Indication: BLOOD CHOLESTEROL INCREASED
  9. LIBRAX [Concomitant]
     Indication: GASTROINTESTINAL DISORDER

REACTIONS (6)
  - Coronary artery occlusion [Recovered/Resolved]
  - Coronary artery stenosis [Recovered/Resolved]
  - Atrial fibrillation [Not Recovered/Not Resolved]
  - High density lipoprotein decreased [Not Recovered/Not Resolved]
  - Flushing [Not Recovered/Not Resolved]
  - Pruritus [Not Recovered/Not Resolved]
